FAERS Safety Report 6517994-0 (Version None)
Quarter: 2009Q4

REPORT INFORMATION
  Report Type: 
  Country: None (occurrence: None)
  Receive Date: 20091224
  Receipt Date: 20091216
  Transmission Date: 20100525
  Serious: No
  Sender: FDA-Public Use
  Company Number: BR-ELI_LILLY_AND_COMPANY-BR200911005648

PATIENT
  Sex: Female

DRUGS (2)
  1. CYMBALTA [Suspect]
     Indication: FIBROMYALGIA
     Dosage: 60 MG, EACH MORNING
     Route: 048
     Dates: start: 20091001
  2. LYRICA [Concomitant]
     Indication: FIBROMYALGIA
     Dosage: 75 MG, EACH EVENING
     Route: 065
     Dates: start: 20091001

REACTIONS (1)
  - NO ADVERSE EVENT [None]
